FAERS Safety Report 7541931-3 (Version None)
Quarter: 2011Q2

REPORT INFORMATION
  Report Type: 
  Country: None (occurrence: None)
  Receive Date: 20110524
  Receipt Date: 20110324
  Transmission Date: 20111010
  Serious: No
  Sender: FDA-Public Use
  Company Number: 029995

PATIENT
  Sex: Male
  Weight: 64.4 kg

DRUGS (4)
  1. PENTASA [Concomitant]
  2. CIMZIA [Suspect]
     Indication: CROHN'S DISEASE
     Dosage: (400 MG 1X/4 WEEKS SUBCUTANEOUS)
     Route: 058
     Dates: start: 20090824
  3. MERCAPTOPURINE [Concomitant]
  4. TRAMADOL HCL [Concomitant]

REACTIONS (3)
  - WEIGHT DECREASED [None]
  - VITAMIN D DEFICIENCY [None]
  - INJECTION SITE PAIN [None]
